FAERS Safety Report 8867585 (Version 1)
Quarter: 2012Q4

REPORT INFORMATION
  Report Type: 
  Country: US (occurrence: US)
  Receive Date: 20121025
  Receipt Date: 20121025
  Transmission Date: 20130627
  Serious: No
  Sender: FDA-Public Use
  Company Number: US-AMGEN-USASP2012017718

PATIENT
  Sex: Female
  Weight: 119.27 kg

DRUGS (12)
  1. ENBREL [Suspect]
     Indication: PRODUCT USED FOR UNKNOWN INDICATION
     Dosage: 50 mg, qwk
     Route: 058
  2. METHOTREXATE [Concomitant]
     Dosage: 2.5 mg, UNK
  3. NABUMETONE [Concomitant]
     Dosage: 500 mg, UNK
  4. ZANTAC [Concomitant]
     Dosage: 150 mg, UNK
  5. LISINOPRIL [Concomitant]
     Dosage: 2.5 mg, UNK
  6. METFORMIN [Concomitant]
     Dosage: 1000 mg, UNK
  7. FOLIC ACID [Concomitant]
     Dosage: 1 mg, UNK
  8. FISH OIL [Concomitant]
     Dosage: UNK
  9. ZINC [Concomitant]
     Dosage: 30 mg, UNK
  10. MELATONIN [Concomitant]
     Dosage: 1 mg, UNK
  11. CALCIUM [Concomitant]
     Dosage: UNK
  12. MINERALS NOS [Concomitant]
     Dosage: UNK

REACTIONS (2)
  - Pain [Unknown]
  - Oedema peripheral [Unknown]
